FAERS Safety Report 8171940-5 (Version None)
Quarter: 2012Q1

REPORT INFORMATION
  Report Type: 
  Country: None (occurrence: None)
  Receive Date: 20120228
  Receipt Date: 20120217
  Transmission Date: 20120608
  Serious: Yes (Other)
  Sender: FDA-Public Use
  Company Number: AU-ROCHE-1043680

PATIENT
  Sex: Female

DRUGS (6)
  1. LASIX [Concomitant]
  2. LUCENTIS [Suspect]
     Dosage: RIGHT EYE
     Route: 050
     Dates: start: 20111222
  3. ZOCOR [Concomitant]
  4. FOSAMAX [Concomitant]
  5. LUCENTIS [Suspect]
     Indication: AGE-RELATED MACULAR DEGENERATION
     Dosage: RIGHT EYE
     Route: 050
     Dates: start: 20091201
  6. RAMIPRIL [Concomitant]

REACTIONS (3)
  - OPTIC DISC HAEMORRHAGE [None]
  - OCULAR HYPERTENSION [None]
  - VISUAL FIELD DEFECT [None]
